FAERS Safety Report 24215054 (Version 2)
Quarter: 2024Q4

REPORT INFORMATION
  Report Type: Spontaneous
  Country: FR (occurrence: FR)
  Receive Date: 20240816
  Receipt Date: 20241007
  Transmission Date: 20250114
  Serious: Yes (Other)
  Sender: PFIZER
  Company Number: FR-PFIZER INC-PV202400103492

PATIENT
  Age: 34 Year
  Sex: Female
  Weight: 82 kg

DRUGS (3)
  1. OXBRYTA [Suspect]
     Active Substance: VOXELOTOR
     Indication: Haemolytic anaemia
     Dosage: 1500 MG
     Route: 048
     Dates: start: 20210701, end: 202304
  2. OXBRYTA [Suspect]
     Active Substance: VOXELOTOR
     Indication: Sickle cell anaemia
     Dosage: 1500 MG
     Route: 048
     Dates: start: 20240708
  3. SIKLOS [Concomitant]
     Active Substance: HYDROXYUREA
     Indication: Sickle cell disease
     Dosage: UNK

REACTIONS (9)
  - Haemoglobin abnormal [Recovered/Resolved]
  - Haematocrit abnormal [Unknown]
  - Reticulocyte count abnormal [Recovered/Resolved]
  - White blood cell count abnormal [Recovered/Resolved]
  - Neutrophil count abnormal [Recovered/Resolved]
  - Platelet count abnormal [Recovered/Resolved]
  - Blood bilirubin abnormal [Recovered/Resolved]
  - Aspartate aminotransferase abnormal [Recovered/Resolved]
  - Alanine aminotransferase abnormal [Recovered/Resolved]

NARRATIVE: CASE EVENT DATE: 20240808
